FAERS Safety Report 4315927-9 (Version None)
Quarter: 2004Q1

REPORT INFORMATION
  Report Type: 
  Country: None (occurrence: None)
  Receive Date: 20040311
  Receipt Date: 20040311
  Transmission Date: 20041129
  Serious: Yes (Other)
  Sender: FDA-Public Use
  Company Number: None

PATIENT
  Age: 29 Year
  Sex: Male

DRUGS (2)
  1. NEXIUM [Suspect]
  2. OPTIRAY 320 [Suspect]
     Dosage: 125 ML X 1 IV
     Route: 042
     Dates: start: 20040304

REACTIONS (8)
  - ANAPHYLACTOID REACTION [None]
  - BLOOD PRESSURE IMMEASURABLE [None]
  - DYSPNOEA [None]
  - PARAESTHESIA [None]
  - PULSE PRESSURE DECREASED [None]
  - RASH ERYTHEMATOUS [None]
  - SENSATION OF FOREIGN BODY [None]
  - SWELLING FACE [None]
